FAERS Safety Report 7320298 (Version 3)
Quarter: 2015Q1

REPORT INFORMATION
  Report Type: Report from Study
  Country: PL (occurrence: PL)
  Receive Date: 20100315
  Receipt Date: 20150227
  Transmission Date: 20150721
  Serious: Yes (Death, Hospitalization)
  Sender: FDA-Public Use
  Company Number: PL-ROCHE-648900

PATIENT
  Age: 50 Year
  Sex: Male
  Weight: 84 kg

DRUGS (33)
  1. CEFIXIME. [Concomitant]
     Active Substance: CEFIXIME
     Dosage: DRUG NAME REPORTED AS TARCEFOXIME, TDD REPORTED AS ND
     Route: 065
     Dates: start: 20090819, end: 20090820
  2. MORPHINE SULFATE. [Concomitant]
     Active Substance: MORPHINE SULFATE
     Dosage: TDD REPORTED AS:ND
     Route: 065
     Dates: start: 20090819, end: 20090820
  3. FRUSEMIDE [Concomitant]
     Active Substance: FUROSEMIDE
     Route: 065
     Dates: start: 20090809, end: 20090813
  4. TRAMADOL [Concomitant]
     Active Substance: TRAMADOL
     Route: 065
     Dates: start: 20090705, end: 20090705
  5. ACIDUM FOLICUM [Concomitant]
     Active Substance: FOLIC ACID
     Dosage: DRUG NAME REPORTED AS AC FOLICUM
     Route: 065
     Dates: start: 20090817, end: 20090820
  6. PROXACIN (POLAND) [Concomitant]
     Dosage: TDD REPORTED AS ND
     Route: 065
     Dates: start: 20090819, end: 20090820
  7. NADROPARINUM CALCICUM [Concomitant]
     Route: 065
     Dates: start: 20090806, end: 20090819
  8. TOCILIZUMAB [Suspect]
     Active Substance: TOCILIZUMAB
     Route: 042
  9. DICLOFENAC [Concomitant]
     Active Substance: DICLOFENAC
     Route: 065
     Dates: start: 20040506, end: 20090805
  10. LANSOPRAZOLE. [Concomitant]
     Active Substance: LANSOPRAZOLE
     Route: 065
     Dates: start: 20040114, end: 20090805
  11. PERINDOPRIL [Concomitant]
     Active Substance: PERINDOPRIL
     Dosage: TDD REPORTED AS ND
     Route: 065
     Dates: start: 20090819, end: 20090820
  12. INDOMETACINE [Concomitant]
     Route: 065
     Dates: start: 20090813, end: 20090819
  13. CIPROFLOXACIN. [Concomitant]
     Active Substance: CIPROFLOXACIN
     Route: 065
     Dates: start: 20090807, end: 20090818
  14. KETONAL (POLAND) [Concomitant]
     Route: 065
     Dates: start: 20090818, end: 20090820
  15. SPIRONOLACTONE. [Concomitant]
     Active Substance: SPIRONOLACTONE
     Route: 065
     Dates: start: 20090813, end: 20090820
  16. HYDROCORTISONE. [Concomitant]
     Active Substance: HYDROCORTISONE
     Route: 065
     Dates: start: 20090807, end: 20090810
  17. CEFTRIAXONE. [Concomitant]
     Active Substance: CEFTRIAXONE
     Route: 065
     Dates: start: 20090806, end: 20090818
  18. TOCILIZUMAB [Suspect]
     Active Substance: TOCILIZUMAB
     Route: 042
  19. TOCILIZUMAB [Suspect]
     Active Substance: TOCILIZUMAB
     Route: 042
  20. PREDNISONE. [Suspect]
     Active Substance: PREDNISONE
     Route: 065
     Dates: start: 20090810, end: 20090820
  21. AMOXICILLIN/CLAVULANIC ACID [Concomitant]
     Active Substance: AMOXICILLIN\CLAVULANIC ACID
     Route: 065
  22. TOCILIZUMAB [Suspect]
     Active Substance: TOCILIZUMAB
     Indication: RHEUMATOID ARTHRITIS
     Route: 042
     Dates: start: 20061108, end: 20081008
  23. AMLODIPINE [Concomitant]
     Active Substance: AMLODIPINE BESYLATE
     Route: 065
     Dates: start: 200603, end: 20090805
  24. OMEPRAZOLE. [Concomitant]
     Active Substance: OMEPRAZOLE
     Route: 065
     Dates: start: 20090805, end: 20090820
  25. SPIRONOLACTONE. [Concomitant]
     Active Substance: SPIRONOLACTONE
     Route: 065
     Dates: start: 20090809, end: 20090812
  26. ZAFIRON [Concomitant]
     Dosage: DRUG NAME REPORTED AS FORMOTEROL FUMARATE
     Route: 065
     Dates: start: 20090817, end: 20090820
  27. METHOTREXATE [Suspect]
     Active Substance: METHOTREXATE
     Indication: RHEUMATOID ARTHRITIS
     Dosage: DOSE REPORTED AS 10-25 MG/WEEK AS PER PROTOCOL
     Route: 048
     Dates: start: 20041202, end: 20090804
  28. POTASSIUM CHLORATE [Concomitant]
     Active Substance: POTASSIUM CHLORATE
     Route: 065
     Dates: start: 20090810, end: 20090813
  29. TOCILIZUMAB [Suspect]
     Active Substance: TOCILIZUMAB
     Indication: RHEUMATOID ARTHRITIS
     Dosage: REPORTED FORM: INFUSION.LAST DOSE PRIOR TO SAE 15 JULY 2009
     Route: 042
  30. TOCILIZUMAB [Suspect]
     Active Substance: TOCILIZUMAB
     Route: 042
  31. PREDNISONE. [Suspect]
     Active Substance: PREDNISONE
     Indication: PRODUCT USED FOR UNKNOWN INDICATION
     Dosage: DRUG REPORTED: PREDNISON
     Route: 065
     Dates: start: 20050412, end: 20090806
  32. METRONIDAZOLE. [Concomitant]
     Active Substance: METRONIDAZOLE
     Dosage: TDD REPORTED AS ND
     Route: 065
     Dates: start: 20090819, end: 20090820
  33. RAMIPRIL. [Concomitant]
     Active Substance: RAMIPRIL
     Route: 065
     Dates: start: 20090813, end: 20090819

REACTIONS (4)
  - Large cell lung cancer [Fatal]
  - Pulmonary haemorrhage [Not Recovered/Not Resolved]
  - Cardio-respiratory arrest [Fatal]
  - Pneumonia [Fatal]

NARRATIVE: CASE EVENT DATE: 20090805
